FAERS Safety Report 10219386 (Version 3)
Quarter: 2014Q2

REPORT INFORMATION
  Report Type: Spontaneous
  Country: FI (occurrence: FI)
  Receive Date: 20140605
  Receipt Date: 20140619
  Transmission Date: 20141212
  Serious: Yes (Life-Threatening, Hospitalization)
  Sender: FDA-Public Use
  Company Number: FI-EISAI INC-E2007-01709-SPO-FI

PATIENT
  Age: 6 Year
  Sex: Male
  Weight: 24 kg

DRUGS (8)
  1. FYCOMPA (PERAMPANEL) [Suspect]
     Indication: EPILEPSY
     Route: 048
     Dates: start: 20140524, end: 20140525
  2. OSPOLOT [Concomitant]
     Indication: PRODUCT USED FOR UNKNOWN INDICATION
     Dosage: 250 MG/DAY
     Route: 048
     Dates: start: 20121203, end: 20140524
  3. OSPOLOT [Concomitant]
     Dosage: 300 MG/DAY
     Dates: start: 20140525, end: 20140525
  4. OSPOLOT [Concomitant]
     Dosage: 250 MG/DAY
     Dates: start: 20140526
  5. FRISIUM [Concomitant]
     Indication: PRODUCT USED FOR UNKNOWN INDICATION
     Dosage: 10 MG/DAY
     Route: 048
     Dates: start: 20121107, end: 20140524
  6. FRISIUM [Concomitant]
     Dosage: 12.5 MG/DAY
     Dates: start: 20140525, end: 20140525
  7. FRISIUM [Concomitant]
     Dosage: 10 MG/DAY
     Dates: start: 20140526, end: 20140602
  8. FRISIUM [Concomitant]
     Dates: start: 20140603

REACTIONS (1)
  - Status epilepticus [Recovered/Resolved]
